FAERS Safety Report 13881119 (Version 2)
Quarter: 2017Q3

REPORT INFORMATION
  Report Type: Spontaneous
  Country: CH (occurrence: CH)
  Receive Date: 20170818
  Receipt Date: 20170822
  Transmission Date: 20171127
  Serious: Yes (Death, Hospitalization)
  Sender: FDA-Public Use
  Company Number: CH-ASTRAZENECA-2017SE83040

PATIENT
  Age: 54 Year
  Sex: Male
  Weight: 65 kg

DRUGS (13)
  1. LYRICA [Concomitant]
     Active Substance: PREGABALIN
     Route: 048
  2. BENERVA [Concomitant]
     Active Substance: THIAMINE
     Route: 048
  3. BECOZYM [Concomitant]
     Active Substance: VITAMINS
     Route: 048
  4. EFFORTIL TROPFEN [Concomitant]
     Route: 048
  5. CALCIMAGON-D3 [Concomitant]
     Active Substance: CALCIUM\CHOLECALCIFEROL
  6. ARIXTRA [Suspect]
     Active Substance: FONDAPARINUX SODIUM
     Indication: PULMONARY EMBOLISM
     Route: 058
     Dates: start: 20170320, end: 20170322
  7. PANTOZOL [Concomitant]
     Active Substance: PANTOPRAZOLE SODIUM
  8. VI-DE 3 [Concomitant]
     Active Substance: CHOLECALCIFEROL
     Route: 048
  9. SEROQUEL [Suspect]
     Active Substance: QUETIAPINE FUMARATE
     Route: 048
  10. REMERON [Suspect]
     Active Substance: MIRTAZAPINE
     Route: 065
  11. MST CONTINUS [Suspect]
     Active Substance: MORPHINE SULFATE
     Route: 048
  12. ELTROXIN LF [Concomitant]
  13. AUGMENTIN [Concomitant]
     Active Substance: AMOXICILLIN\CLAVULANATE POTASSIUM

REACTIONS (4)
  - Cardiac arrest [Recovered/Resolved]
  - Hypoxia [Fatal]
  - Multiple organ dysfunction syndrome [Fatal]
  - Subdural haematoma [Recovered/Resolved]

NARRATIVE: CASE EVENT DATE: 20170322
